FAERS Safety Report 4491180-0 (Version None)
Quarter: 2004Q3

REPORT INFORMATION
  Report Type: 
  Country: None (occurrence: None)
  Receive Date: 20040927
  Receipt Date: 20040802
  Transmission Date: 20050211
  Serious: No
  Sender: FDA-Public Use
  Company Number: USA040874290

PATIENT
  Age: 7 Year
  Sex: Male
  Weight: 29 kg

DRUGS (1)
  1. STRATTERA [Suspect]
     Dosage: 25 MG / 1 DAY
     Route: 048
     Dates: start: 20040727

REACTIONS (3)
  - AGGRESSION [None]
  - RETCHING [None]
  - TREMOR [None]
